FAERS Safety Report 8119406-2 (Version None)
Quarter: 2012Q1

REPORT INFORMATION
  Report Type: 
  Country: None (occurrence: None)
  Receive Date: 20120207
  Receipt Date: 20120124
  Transmission Date: 20120608
  Serious: Yes (Other)
  Sender: FDA-Public Use
  Company Number: US-MYLANLABS-2012S1002564

PATIENT
  Age: 31 Month
  Sex: Male

DRUGS (4)
  1. CARBOPLATIN [Suspect]
     Indication: RETINOBLASTOMA UNILATERAL
     Route: 013
  2. ASPIRIN [Concomitant]
  3. HEPARIN [Concomitant]
  4. MELPHALAN HYDROCHLORIDE [Suspect]
     Indication: RETINOBLASTOMA UNILATERAL
     Route: 013

REACTIONS (4)
  - RETINOBLASTOMA [None]
  - EXTRAOCULAR MUSCLE DISORDER [None]
  - EYELID OEDEMA [None]
  - RETINAL PIGMENT EPITHELIOPATHY [None]
